FAERS Safety Report 16929240 (Version 3)
Quarter: 2020Q2

REPORT INFORMATION
  Report Type: Report from Study
  Country: BR (occurrence: BR)
  Receive Date: 20191017
  Receipt Date: 20200613
  Transmission Date: 20200713
  Serious: Yes (Hospitalization)
  Sender: FDA-Public Use
  Company Number: NVSC2019BR004113

PATIENT
  Age: 57 Year
  Sex: Female

DRUGS (1)
  1. COSENTYX [Suspect]
     Active Substance: SECUKINUMAB
     Indication: PSORIATIC ARTHROPATHY
     Dosage: 300 MG, UNKNOWN (2 INJECTIONS)
     Route: 065
     Dates: start: 20190918

REACTIONS (10)
  - Malaise [Unknown]
  - Wound [Not Recovered/Not Resolved]
  - Heart rate increased [Recovered/Resolved with Sequelae]
  - Muscular weakness [Recovered/Resolved with Sequelae]
  - Hypertension [Recovered/Resolved with Sequelae]
  - Blood pressure abnormal [Unknown]
  - Psoriasis [Not Recovered/Not Resolved]
  - Pain [Not Recovered/Not Resolved]
  - Skin fissures [Not Recovered/Not Resolved]
  - Weight decreased [Not Recovered/Not Resolved]

NARRATIVE: CASE EVENT DATE: 20190919
